FAERS Safety Report 8436116-2 (Version None)
Quarter: 2012Q2

REPORT INFORMATION
  Report Type: 
  Country: None (occurrence: None)
  Receive Date: 20120614
  Receipt Date: 20120607
  Transmission Date: 20120825
  Serious: Yes (Death, Other)
  Sender: FDA-Public Use
  Company Number: RU-ROCHE-1077342

PATIENT
  Sex: Male
  Weight: 56 kg

DRUGS (2)
  1. AVASTIN [Suspect]
     Indication: METASTATIC RENAL CELL CARCINOMA
     Route: 042
     Dates: start: 20090811, end: 20091103
  2. INTERFERON ALFA-2A [Suspect]
     Indication: METASTATIC RENAL CELL CARCINOMA
     Route: 058
     Dates: start: 20090811, end: 20091103

REACTIONS (2)
  - NEOPLASM MALIGNANT [None]
  - DRUG INEFFECTIVE [None]
